FAERS Safety Report 11860383 (Version 1)
Quarter: 2015Q4

REPORT INFORMATION
  Report Type: Spontaneous
  Country: US (occurrence: US)
  Receive Date: 20151222
  Receipt Date: 20151222
  Transmission Date: 20160305
  Serious: Yes (Other)
  Sender: FDA-Public Use
  Company Number: US-BAUSCH-BL-2015-030337

PATIENT
  Age: 63 Year
  Sex: Male
  Weight: 81.72 kg

DRUGS (10)
  1. CLONAZEPAM 0.5MG [Concomitant]
     Active Substance: CLONAZEPAM
     Indication: ANXIETY
     Route: 048
  2. PROPRANOLOL 20MG [Concomitant]
     Active Substance: PROPRANOLOL HYDROCHLORIDE
     Indication: HYPERTENSION
     Route: 048
  3. SPIRONOLACTONE 100MG [Concomitant]
     Indication: HYPERTENSION
     Route: 048
  4. XIFAXAN [Suspect]
     Active Substance: RIFAXIMIN
     Indication: HEPATIC ENCEPHALOPATHY
     Route: 048
  5. MAGNESIUM OXIDE. [Concomitant]
     Active Substance: MAGNESIUM OXIDE
     Indication: SUPPLEMENTATION THERAPY
     Route: 048
  6. PAROXETINE 20MG [Concomitant]
     Active Substance: PAROXETINE\PAROXETINE HYDROCHLORIDE
     Indication: DEPRESSION
     Route: 048
  7. POTASSIUM 20MEQ [Concomitant]
     Indication: SUPPLEMENTATION THERAPY
     Route: 048
  8. ROPINIROLE 0.25MG [Concomitant]
     Indication: RESTLESS LEGS SYNDROME
     Route: 048
  9. LASIX 80MG [Concomitant]
     Indication: FLUID RETENTION
     Route: 048
  10. SPIRONOLACTONE 100MG [Concomitant]
     Indication: FLUID RETENTION

REACTIONS (3)
  - Tendon rupture [Not Recovered/Not Resolved]
  - Fall [Not Recovered/Not Resolved]
  - Rotator cuff syndrome [Not Recovered/Not Resolved]

NARRATIVE: CASE EVENT DATE: 20151125
